FAERS Safety Report 9741093 (Version 1)
Quarter: 2013Q4

REPORT INFORMATION
  Report Type: Spontaneous
  Country: GB (occurrence: GB)
  Receive Date: 20131209
  Receipt Date: 20131209
  Transmission Date: 20140711
  Serious: Yes (Disabling, Other)
  Sender: FDA-Public Use
  Company Number: GB-TEVA-448732ISR

PATIENT
  Age: 72 Year
  Sex: Male

DRUGS (3)
  1. DOXAZOSIN [Suspect]
     Indication: PROSTATE VOLUME STUDY
     Route: 048
     Dates: start: 201211, end: 201302
  2. RAMIPRIL [Concomitant]
  3. FINASTERIDE [Concomitant]

REACTIONS (4)
  - Local swelling [Recovering/Resolving]
  - Hyperaesthesia [Not Recovered/Not Resolved]
  - Physical disability [Unknown]
  - Skin reaction [Unknown]
